FAERS Safety Report 6648234-X (Version None)
Quarter: 2010Q1

REPORT INFORMATION
  Report Type: 
  Country: None (occurrence: None)
  Receive Date: 20100319
  Receipt Date: 20100310
  Transmission Date: 20100710
  Serious: Yes (Hospitalization)
  Sender: FDA-Public Use
  Company Number: 230448J10BRA

PATIENT
  Sex: Female

DRUGS (5)
  1. REBIF [Suspect]
     Indication: MULTIPLE SCLEROSIS
     Dosage: 22 MCG, 3 IN 1 WEEKS
     Dates: start: 20071001, end: 20100101
  2. VERTIX (FLUNARIZINE DIHYDROCHLORIDE) [Concomitant]
  3. SINVASTATIN (SIMVASTATIN) [Concomitant]
  4. OMEPRAZOLE [Concomitant]
  5. FERROUS SULPHATE (FERROUS SULFATE) [Concomitant]

REACTIONS (3)
  - CEREBROVASCULAR ACCIDENT [None]
  - MOVEMENT DISORDER [None]
  - PAIN IN EXTREMITY [None]
